FAERS Safety Report 20535258 (Version 3)
Quarter: 2022Q1

REPORT INFORMATION
  Report Type: Spontaneous
  Country: NL (occurrence: NL)
  Receive Date: 20220302
  Receipt Date: 20220311
  Transmission Date: 20220423
  Serious: Yes (Death, Hospitalization, Other)
  Sender: FDA-Public Use
  Company Number: NL-009507513-2202NLD008549

PATIENT
  Age: 73 Year
  Sex: Male
  Weight: 70 kg

DRUGS (1)
  1. PEMBROLIZUMAB [Suspect]
     Active Substance: PEMBROLIZUMAB
     Indication: Lip and/or oral cavity cancer
     Dosage: 200 MILLIGRAM, Q3W
     Route: 042
     Dates: start: 20200617, end: 202102

REACTIONS (7)
  - Malignant neoplasm progression [Fatal]
  - Tumour pseudoprogression [Recovered/Resolved]
  - Arthritis [Recovered/Resolved]
  - Colitis [Recovered/Resolved]
  - Therapy partial responder [Unknown]
  - Hepatomegaly [Recovered/Resolved]
  - Pain [Recovered/Resolved]

NARRATIVE: CASE EVENT DATE: 20200625
